FAERS Safety Report 19051181 (Version 1)
Quarter: 2021Q1

REPORT INFORMATION
  Report Type: Report from Study
  Country: ES (occurrence: ES)
  Receive Date: 20210324
  Receipt Date: 20210324
  Transmission Date: 20210420
  Serious: Yes (Other)
  Sender: FDA-Public Use
  Company Number: PHHY2019ES040005

PATIENT
  Age: 7 Year
  Sex: Female
  Weight: 22 kg

DRUGS (6)
  1. DABRAFENIB [Suspect]
     Active Substance: DABRAFENIB
     Dosage: 3.15 MG/KG
     Route: 048
     Dates: start: 20190708, end: 20191111
  2. DABRAFENIB [Suspect]
     Active Substance: DABRAFENIB
     Indication: HISTIOCYTOSIS
     Dosage: 2.25 MG/KG, BID
     Route: 048
     Dates: start: 20170515
  3. DABRAFENIB [Suspect]
     Active Substance: DABRAFENIB
     Indication: METASTATIC MALIGNANT MELANOMA
     Dosage: 5.25 MG/KG, BID
     Route: 048
     Dates: start: 20170515, end: 20190212
  4. DABRAFENIB [Suspect]
     Active Substance: DABRAFENIB
     Dosage: 2.5 MG/KG PER DAY
     Route: 048
  5. DABRAFENIB [Suspect]
     Active Substance: DABRAFENIB
     Indication: LANGERHANS^ CELL HISTIOCYTOSIS
     Dosage: UNK
     Route: 048
     Dates: start: 20190307, end: 20190401
  6. DABRAFENIB [Suspect]
     Active Substance: DABRAFENIB
     Dosage: 4.5 MG/KG PER DAY
     Route: 048

REACTIONS (9)
  - Uveitis [Recovered/Resolved]
  - Uveitis [Recovered/Resolved]
  - Iridocyclitis [Recovered/Resolved]
  - Histiocytosis [Unknown]
  - Mass [Unknown]
  - Uveitis [Recovered/Resolved]
  - Iris disorder [Unknown]
  - Iridocyclitis [Recovered/Resolved]
  - Ocular hypertension [Unknown]

NARRATIVE: CASE EVENT DATE: 20190211
